FAERS Safety Report 7991225-7 (Version None)
Quarter: 2011Q4

REPORT INFORMATION
  Report Type: 
  Country: None (occurrence: None)
  Receive Date: 20111219
  Receipt Date: 20111213
  Transmission Date: 20120403
  Serious: Yes (Life-Threatening, Hospitalization, Disabling, Other)
  Sender: FDA-Public Use
  Company Number: US-GLAXOSMITHKLINE-A0958311A

PATIENT
  Age: 24 Year
  Sex: Female

DRUGS (2)
  1. LAMOTRIGINE [Suspect]
     Indication: CONVULSION
     Dosage: 150MG TWICE PER DAY
     Route: 048
  2. TOPAMAX [Concomitant]

REACTIONS (3)
  - INCORRECT DRUG ADMINISTRATION RATE [None]
  - LIVER DISORDER [None]
  - STEVENS-JOHNSON SYNDROME [None]
